FAERS Safety Report 5401867-0 (Version None)
Quarter: 2007Q3

REPORT INFORMATION
  Report Type: 
  Country: None (occurrence: None)
  Receive Date: 20070731
  Receipt Date: 20070723
  Transmission Date: 20080115
  Serious: Yes (Hospitalization, Other)
  Sender: FDA-Public Use
  Company Number: US-ELI_LILLY_AND_COMPANY-US200707005523

PATIENT
  Age: 84 Year
  Sex: Male

DRUGS (2)
  1. HUMULIN 70/30 [Suspect]
     Indication: BLOOD GLUCOSE INCREASED
     Dates: start: 19990101
  2. HUMULIN N [Suspect]
     Dates: start: 19770101

REACTIONS (7)
  - BLOOD GLUCOSE INCREASED [None]
  - DRUG INEFFECTIVE [None]
  - GALLBLADDER DISORDER [None]
  - PROSTATE CANCER [None]
  - RECTAL HAEMORRHAGE [None]
  - SLUGGISHNESS [None]
  - UMBILICAL HERNIA [None]
